FAERS Safety Report 4871256-6 (Version None)
Quarter: 2005Q4

REPORT INFORMATION
  Report Type: 
  Country: None (occurrence: None)
  Receive Date: 20051229
  Receipt Date: 20051213
  Transmission Date: 20060501
  Serious: Yes (Hospitalization)
  Sender: FDA-Public Use
  Company Number: 2005168199

PATIENT
  Sex: Male
  Weight: 90.7194 kg

DRUGS (5)
  1. VIAGRA [Suspect]
     Indication: ERECTILE DYSFUNCTION
     Dosage: 25 MG (25 MG, 1 AS NECESSARY), ORAL
     Route: 048
  2. TESTOSTERONE [Suspect]
     Indication: BLOOD TESTOSTERONE DECREASED
     Dosage: EVERY 3 WEEKS
  3. LISINOPRIL [Concomitant]
  4. HYDROCHLOROTHIAZIDE [Concomitant]
  5. ALAVERT [Concomitant]

REACTIONS (5)
  - ARTHRITIS [None]
  - BACK INJURY [None]
  - CALCINOSIS [None]
  - DRUG EFFECT DECREASED [None]
  - HERNIA [None]
